FAERS Safety Report 13829806 (Version 1)
Quarter: 2017Q3

REPORT INFORMATION
  Report Type: Report from Study
  Country: BR (occurrence: BR)
  Receive Date: 20170803
  Receipt Date: 20170803
  Transmission Date: 20171127
  Serious: Yes (Other)
  Sender: FDA-Public Use
  Company Number: PHHY2017BR097965

PATIENT
  Sex: Female
  Weight: 66 kg

DRUGS (2)
  1. ACLASTA [Suspect]
     Active Substance: ZOLEDRONIC ACID
     Dosage: 1 DF, Q12MO
     Route: 042
     Dates: start: 2016, end: 2016
  2. ACLASTA [Suspect]
     Active Substance: ZOLEDRONIC ACID
     Indication: OSTEOPOROSIS
     Dosage: 1 DF, Q12MO
     Route: 042
     Dates: start: 2015

REACTIONS (13)
  - Asthenia [Recovering/Resolving]
  - Fall [Unknown]
  - Dyspnoea [Recovering/Resolving]
  - Fatigue [Unknown]
  - Dysstasia [Unknown]
  - Malaise [Recovering/Resolving]
  - Osteoporosis [Unknown]
  - Abdominal discomfort [Recovering/Resolving]
  - Gastrointestinal disorder [Unknown]
  - Condition aggravated [Unknown]
  - Glaucoma [Recovering/Resolving]
  - Food poisoning [Unknown]
  - Gluten sensitivity [Unknown]
